FAERS Safety Report 12010293 (Version 1)
Quarter: 2016Q1

REPORT INFORMATION
  Report Type: Spontaneous
  Country: US (occurrence: None)
  Receive Date: 20160204
  Receipt Date: 20160204
  Transmission Date: 20160526
  Serious: Yes (Hospitalization)
  Sender: FDA-Public Use
  Company Number: None

PATIENT
  Age: 25 Year
  Sex: Female
  Weight: 68.04 kg

DRUGS (3)
  1. PRENATAL VITAMINS [Concomitant]
     Active Substance: VITAMINS
  2. SYMBICORT [Suspect]
     Active Substance: BUDESONIDE\FORMOTEROL FUMARATE DIHYDRATE
     Indication: PERTUSSIS
     Dosage: 2 HUFFS TWICE DAILY INHALATION
     Route: 055
     Dates: start: 20150821, end: 20150901
  3. CELEXA [Concomitant]
     Active Substance: CITALOPRAM HYDROBROMIDE

REACTIONS (4)
  - Emotional disorder [None]
  - Exposure during pregnancy [None]
  - Premature labour [None]
  - Economic problem [None]

NARRATIVE: CASE EVENT DATE: 20160203
